FAERS Safety Report 9353092 (Version 1)
Quarter: 2013Q2

REPORT INFORMATION
  Report Type: Spontaneous
  Country: US (occurrence: None)
  Receive Date: 20130612
  Receipt Date: 20130612
  Transmission Date: 20140414
  Serious: Yes (Hospitalization)
  Sender: FDA-Public Use
  Company Number: US-SEPTODONT-201301125

PATIENT
  Sex: 0

DRUGS (1)
  1. MARCAINE [Suspect]
     Indication: LOCAL ANAESTHESIA
     Dosage: DENTAL

REACTIONS (2)
  - Contusion [None]
  - Swelling [None]
